FAERS Safety Report 9963718 (Version 1)
Quarter: 2014Q1

REPORT INFORMATION
  Report Type: Spontaneous
  Country: US (occurrence: US)
  Receive Date: 20140305
  Receipt Date: 20140305
  Transmission Date: 20141002
  Serious: No
  Sender: FDA-Public Use
  Company Number: US-ABBVIE-13P-163-1116997-00

PATIENT
  Age: 71 Year
  Sex: Female

DRUGS (1)
  1. HUMIRA [Suspect]
     Indication: PSORIATIC ARTHROPATHY
     Dates: start: 201210

REACTIONS (4)
  - Laceration [Recovering/Resolving]
  - Alopecia [Not Recovered/Not Resolved]
  - Fall [Recovered/Resolved]
  - Contusion [Recovering/Resolving]
